FAERS Safety Report 10405736 (Version 1)
Quarter: 2014Q3

REPORT INFORMATION
  Report Type: Spontaneous
  Country: BR (occurrence: BR)
  Receive Date: 20140825
  Receipt Date: 20140825
  Transmission Date: 20150326
  Serious: Yes (Other)
  Sender: FDA-Public Use
  Company Number: BR-SA-2014SA110877

PATIENT
  Age: 67 Year
  Sex: Female
  Weight: 109 kg

DRUGS (6)
  1. HYDROCHLOROTHIAZIDE. [Concomitant]
     Active Substance: HYDROCHLOROTHIAZIDE
     Indication: DIURETIC THERAPY
     Route: 048
  2. OMEPRAZOLE. [Concomitant]
     Active Substance: OMEPRAZOLE
     Indication: GASTRIC DISORDER
     Route: 048
  3. LANTUS [Suspect]
     Active Substance: INSULIN GLARGINE
     Indication: TYPE 2 DIABETES MELLITUS
     Route: 058
     Dates: start: 2007
  4. CEBRALAT [Concomitant]
     Active Substance: CILOSTAZOL
     Indication: ANTICOAGULANT THERAPY
     Route: 048
  5. AUTOPEN 24 [Concomitant]
     Active Substance: DEVICE
  6. ENALAPRIL [Concomitant]
     Active Substance: ENALAPRIL
     Indication: BLOOD PRESSURE ABNORMAL
     Route: 048

REACTIONS (5)
  - Gait disturbance [Recovered/Resolved]
  - Motor dysfunction [Recovered/Resolved]
  - Wound [Recovered/Resolved]
  - Foot deformity [Recovered/Resolved]
  - Pain [Recovered/Resolved]

NARRATIVE: CASE EVENT DATE: 2007
